FAERS Safety Report 5748035-0 (Version None)
Quarter: 2008Q2

REPORT INFORMATION
  Report Type: 
  Country: None (occurrence: None)
  Receive Date: 20080523
  Receipt Date: 20080512
  Transmission Date: 20081010
  Serious: No
  Sender: FDA-Public Use
  Company Number: US-JNJFOC-20080502614

PATIENT
  Age: 53 Year
  Sex: Female
  Weight: 51.71 kg

DRUGS (4)
  1. INVEGA [Suspect]
     Indication: DEPRESSION
     Route: 048
  2. LAMICTAL [Concomitant]
     Indication: DEPRESSION
     Route: 048
  3. CLONAZEPAM [Concomitant]
     Indication: ANXIETY
     Route: 048
  4. WELLBUTRIN [Concomitant]

REACTIONS (1)
  - AGGRESSION [None]
